FAERS Safety Report 7679697-9 (Version None)
Quarter: 2011Q3

REPORT INFORMATION
  Report Type: 
  Country: None (occurrence: None)
  Receive Date: 20110812
  Receipt Date: 20110809
  Transmission Date: 20111222
  Serious: Yes (Disabling, Other)
  Sender: FDA-Public Use
  Company Number: US-PFIZER INC-HQWYE200419NOV03

PATIENT
  Sex: Female
  Weight: 66 kg

DRUGS (1)
  1. PREMPRO [Suspect]
     Indication: HORMONE REPLACEMENT THERAPY
     Dosage: 0.625MG DAILY AND INCREASED TO 2.5MG DAILY
     Route: 048
     Dates: start: 19970502, end: 20011116

REACTIONS (2)
  - DEPRESSION [None]
  - BREAST CANCER METASTATIC [None]
